FAERS Safety Report 4802524-1 (Version None)
Quarter: 2005Q4

REPORT INFORMATION
  Report Type: 
  Country: None (occurrence: None)
  Receive Date: 20051013
  Receipt Date: 20051005
  Transmission Date: 20060501
  Serious: Yes (Disabling)
  Sender: FDA-Public Use
  Company Number: 2005138752

PATIENT
  Sex: Male

DRUGS (1)
  1. XANAX [Suspect]
     Indication: ILL-DEFINED DISORDER

REACTIONS (4)
  - ACCIDENT [None]
  - BACK INJURY [None]
  - NECK INJURY [None]
  - PAIN [None]
